FAERS Safety Report 8174193-7 (Version None)
Quarter: 2012Q1

REPORT INFORMATION
  Report Type: 
  Country: None (occurrence: None)
  Receive Date: 20120229
  Receipt Date: 20120111
  Transmission Date: 20120608
  Serious: Yes (Other)
  Sender: FDA-Public Use
  Company Number: US-ROCHE-789786

PATIENT
  Sex: Male
  Weight: 90.8 kg

DRUGS (1)
  1. ACCUTANE [Suspect]
     Indication: ACNE
     Route: 065
     Dates: start: 19950101, end: 19950401

REACTIONS (5)
  - CROHN'S DISEASE [None]
  - INTESTINAL OBSTRUCTION [None]
  - EMOTIONAL DISTRESS [None]
  - SUICIDAL IDEATION [None]
  - INFLAMMATORY BOWEL DISEASE [None]
